FAERS Safety Report 8592813-X (Version None)
Quarter: 2012Q3

REPORT INFORMATION
  Report Type: 
  Country: None (occurrence: None)
  Receive Date: 20120814
  Receipt Date: 20120810
  Transmission Date: 20120928
  Serious: Yes (Hospitalization, Congenital Anomaly, Other)
  Sender: FDA-Public Use
  Company Number: US-PFIZER INC-2011293445

PATIENT
  Sex: Male
  Weight: 2.4 kg

DRUGS (6)
  1. MULTI-VITAMINS [Concomitant]
     Dosage: UNK
     Route: 064
     Dates: start: 20031013
  2. ZOLOFT [Suspect]
     Dosage: 50 UNKNOWN UNITS, UNK
     Route: 064
     Dates: start: 20040301
  3. ALBUTEROL [Concomitant]
     Dosage: UNK
     Route: 064
     Dates: start: 20030922
  4. ZOLOFT [Suspect]
     Indication: DEPRESSION
     Dosage: 50 MG, HALF TABLET PER DAY
     Route: 064
     Dates: start: 20030521
  5. DIPHENHYDRAMINE [Concomitant]
     Dosage: UNK
     Route: 064
     Dates: start: 20030922
  6. PREDNISONE [Concomitant]
     Dosage: UNK
     Route: 064
     Dates: start: 20040414

REACTIONS (42)
  - MATERNAL EXPOSURE TIMING UNSPECIFIED [None]
  - DIGEORGE'S SYNDROME [None]
  - CONGENITAL CENTRAL NERVOUS SYSTEM ANOMALY [None]
  - AORTIC VALVE INCOMPETENCE [None]
  - OTITIS MEDIA [None]
  - CONVULSION [None]
  - PULMONARY VALVE STENOSIS [None]
  - MITRAL VALVE PROLAPSE [None]
  - COGNITIVE DISORDER [None]
  - SMALL FOR DATES BABY [None]
  - MOTOR DYSFUNCTION [None]
  - FALLOT'S TETRALOGY [None]
  - PATENT DUCTUS ARTERIOSUS [None]
  - DOUBLE OUTLET RIGHT VENTRICLE [None]
  - SHWACHMAN-DIAMOND SYNDROME [None]
  - PULMONARY VALVE INCOMPETENCE [None]
  - SPEECH DISORDER DEVELOPMENTAL [None]
  - MICROGNATHIA [None]
  - PENILE TORSION [None]
  - CONGENITAL ANOMALY [None]
  - FAILURE TO THRIVE [None]
  - CEREBRAL HAEMORRHAGE [None]
  - MITRAL VALVE INCOMPETENCE [None]
  - PACHYGYRIA [None]
  - CEREBRAL ISCHAEMIA [None]
  - HEAD LAG [None]
  - VENTRICULAR SEPTAL DEFECT [None]
  - BUNDLE BRANCH BLOCK RIGHT [None]
  - RIGHT AORTIC ARCH [None]
  - RESPIRATORY FAILURE [None]
  - NECK DEFORMITY [None]
  - INGUINAL HERNIA [None]
  - RIGHT VENTRICULAR HYPERTROPHY [None]
  - ATRIAL SEPTAL DEFECT [None]
  - PULMONARY ARTERY ATRESIA [None]
  - CONGENITAL NOSE MALFORMATION [None]
  - PULMONARY VASCULAR DISORDER [None]
  - HYPOSPADIAS [None]
  - TRICUSPID VALVE INCOMPETENCE [None]
  - ARACHNODACTYLY [None]
  - DYSMORPHISM [None]
  - CARDIOMEGALY [None]
